FAERS Safety Report 8859039 (Version 1)
Quarter: 2012Q4

REPORT INFORMATION
  Report Type: Spontaneous
  Country: US (occurrence: None)
  Receive Date: 20121023
  Receipt Date: 20121023
  Transmission Date: 20130627
  Serious: Yes (Other)
  Sender: FDA-Public Use
  Company Number: TPA2012A08205

PATIENT
  Age: 43 Year
  Sex: Male
  Weight: 92.08 kg

DRUGS (2)
  1. ULORIC [Suspect]
     Indication: GOUT
     Route: 048
     Dates: start: 201209
  2. INDOMETHACIN [Suspect]
     Indication: GOUT
     Route: 048
     Dates: start: 201209

REACTIONS (4)
  - Cardiac flutter [None]
  - Chest pain [None]
  - Flatulence [None]
  - Gout [None]
